FAERS Safety Report 23685746 (Version 1)
Quarter: 2024Q1

REPORT INFORMATION
  Report Type: Spontaneous
  Country: US (occurrence: US)
  Receive Date: 20240329
  Receipt Date: 20240329
  Transmission Date: 20240409
  Serious: No
  Sender: FDA-Public Use
  Company Number: US-TEVA-VS-3167198

PATIENT
  Age: 71 Year
  Sex: Female

DRUGS (2)
  1. CLONAZEPAM [Suspect]
     Active Substance: CLONAZEPAM
     Indication: Product used for unknown indication
     Dosage: THE REACTION AFTER TAKING HER FIRST TABLET AND SHE HAD TAKEN THREE TABLETS TOTAL.
     Route: 048
  2. VALIUM [Concomitant]
     Active Substance: DIAZEPAM
     Indication: Labyrinthitis
     Dates: start: 1986

REACTIONS (6)
  - Iodine allergy [Unknown]
  - Swelling face [Unknown]
  - Pruritus [Unknown]
  - Hypersensitivity [Unknown]
  - Adverse event [Unknown]
  - Multiple allergies [Unknown]
